FAERS Safety Report 10568639 (Version 5)
Quarter: 2015Q3

REPORT INFORMATION
  Report Type: Report from Study
  Country: US (occurrence: US)
  Receive Date: 20141106
  Receipt Date: 20150910
  Transmission Date: 20151125
  Serious: Yes (Hospitalization)
  Sender: FDA-Public Use
  Company Number: US-SA-2013SA119024

PATIENT
  Age: 58 Year
  Sex: Female

DRUGS (1)
  1. AUBAGIO [Suspect]
     Active Substance: TERIFLUNOMIDE
     Indication: MULTIPLE SCLEROSIS
     Route: 048
     Dates: start: 20131024

REACTIONS (4)
  - Alopecia [Recovered/Resolved]
  - Influenza [Unknown]
  - Myocardial infarction [Unknown]
  - Sleep disorder [Unknown]

NARRATIVE: CASE EVENT DATE: 2013
